FAERS Safety Report 9010582 (Version 6)
Quarter: 2013Q2

REPORT INFORMATION
  Report Type: Spontaneous
  Country: US (occurrence: US)
  Receive Date: 20130109
  Receipt Date: 20130627
  Transmission Date: 20140414
  Serious: Yes (Hospitalization, Disabling, Other)
  Sender: FDA-Public Use
  Company Number: US-009507513-1301USA002431

PATIENT
  Sex: Female
  Weight: 61.22 kg

DRUGS (1)
  1. NUVARING [Suspect]
     Indication: CONTRACEPTION
     Dosage: UNK
     Route: 067
     Dates: start: 20100702, end: 20101215

REACTIONS (19)
  - Tachycardia [Unknown]
  - Cerebrovascular accident [Not Recovered/Not Resolved]
  - Convulsion [Unknown]
  - Impaired gastric emptying [Unknown]
  - Pain in extremity [Not Recovered/Not Resolved]
  - Thrombosis [Unknown]
  - Cerebrovascular accident [Not Recovered/Not Resolved]
  - Depression [Not Recovered/Not Resolved]
  - Anxiety [Not Recovered/Not Resolved]
  - Hyperlipidaemia [Unknown]
  - Vitamin D deficiency [Unknown]
  - Disorientation [Unknown]
  - Urinary tract infection [Unknown]
  - Panic attack [Unknown]
  - Weight decreased [Recovering/Resolving]
  - Uterine leiomyoma [Unknown]
  - Panic disorder [Unknown]
  - Disorientation [Unknown]
  - Cerebrovascular disorder [Unknown]
